FAERS Safety Report 15353179 (Version 2)
Quarter: 2024Q1

REPORT INFORMATION
  Report Type: Spontaneous
  Country: PT (occurrence: PT)
  Receive Date: 20180905
  Receipt Date: 20240109
  Transmission Date: 20240410
  Serious: Yes (Other)
  Sender: FDA-Public Use
  Company Number: PT-JNJFOC-20180901355

PATIENT
  Age: 70 Year

DRUGS (2)
  1. SIMPONI [Suspect]
     Active Substance: GOLIMUMAB
     Indication: Rheumatoid arthritis
     Route: 058
  2. ENGERIX-B [Suspect]
     Active Substance: HEPATITIS B VIRUS SUBTYPE ADW2 HBSAG SURFACE PROTEIN ANTIGEN
     Indication: Antiviral prophylaxis
     Dosage: 20 MCG OR 1 ML, AT 0, 1 AND 6 MONTHS
     Route: 065

REACTIONS (3)
  - Abdominal abscess [Unknown]
  - Diverticulitis [Unknown]
  - Colectomy [Unknown]
